FAERS Safety Report 17061617 (Version 5)
Quarter: 2020Q3

REPORT INFORMATION
  Report Type: Report from Study
  Country: JP (occurrence: JP)
  Receive Date: 20191121
  Receipt Date: 20200720
  Transmission Date: 20201102
  Serious: Yes (Hospitalization, Other)
  Sender: FDA-Public Use
  Company Number: JP-ALNYLAM PHARMACEUTICALS, INC.-ALN-2019-000878

PATIENT

DRUGS (13)
  1. IRRIBOW [Concomitant]
     Active Substance: RAMOSETRON HYDROCHLORIDE
     Indication: DISEASE COMPLICATION
     Dosage: 10 MICROGRAM
     Route: 048
  2. PANVITAN [Concomitant]
     Active Substance: VITAMINS
     Indication: VITAMIN SUPPLEMENTATION
     Dosage: 1 GRAM
     Route: 048
     Dates: start: 20191106
  3. LAC?B GRANULAR POWDER N [Concomitant]
     Indication: DISEASE COMPLICATION
     Dosage: 4 MILLIGRAM
     Route: 048
  4. GASTER [Concomitant]
     Active Substance: FAMOTIDINE
     Indication: PROPHYLAXIS
     Dosage: 20 MILLIGRAM
     Route: 042
     Dates: start: 20191106
  5. POLARAMINE [Concomitant]
     Active Substance: DEXCHLORPHENIRAMINE MALEATE
     Indication: PROPHYLAXIS
     Dosage: 5 MILLIGRAM
     Route: 042
     Dates: start: 20191106
  6. TSUMURA SHAKUYAKUKANZOTO EXTRACT GRANULES FOR ETHICAL USE [Concomitant]
     Indication: DISEASE COMPLICATION
     Dosage: 2.5 MILLIGRAM
     Route: 048
  7. METLIGINE D [Concomitant]
     Indication: DISEASE COMPLICATION
     Dosage: 4 MILLIGRAM
     Route: 048
  8. RISUMIC [Concomitant]
     Active Substance: AMEZINIUM METILSULFATE
     Indication: DISEASE COMPLICATION
     Dosage: 20 MILLIGRAM
     Route: 048
  9. LYRICA [Concomitant]
     Active Substance: PREGABALIN
     Indication: DISEASE COMPLICATION
     Dosage: 300 MILLIGRAM
     Route: 048
  10. ONPATTRO [Suspect]
     Active Substance: PATISIRAN SODIUM
     Indication: HEREDITARY NEUROPATHIC AMYLOIDOSIS
     Dosage: 5.55 MILLILITER
     Route: 041
     Dates: start: 20191106, end: 20200219
  11. LOPERAMIDE [Concomitant]
     Active Substance: LOPERAMIDE
     Indication: DISEASE COMPLICATION
     Dosage: 2 MILLIGRAM
     Route: 048
  12. DECADRON [Concomitant]
     Active Substance: DEXAMETHASONE
     Indication: PROPHYLAXIS
     Dosage: 10 MILLIGRAM
     Route: 042
     Dates: start: 20191106
  13. CALONAL [Concomitant]
     Active Substance: ACETAMINOPHEN
     Indication: PROPHYLAXIS
     Dosage: 500 MILLIGRAM
     Route: 048
     Dates: start: 20191106

REACTIONS (5)
  - Seizure [Unknown]
  - Oedema peripheral [Recovered/Resolved]
  - Muscular weakness [Not Recovered/Not Resolved]
  - Cardiac failure [Recovered/Resolved]
  - Pleural effusion [Recovered/Resolved]

NARRATIVE: CASE EVENT DATE: 20191111
